FAERS Safety Report 11656390 (Version 2)
Quarter: 2015Q4

REPORT INFORMATION
  Report Type: Report from Study
  Country: IL (occurrence: IL)
  Receive Date: 20151023
  Receipt Date: 20151103
  Transmission Date: 20160304
  Serious: Yes (Other)
  Sender: FDA-Public Use
  Company Number: IL-BAYER-2015-450285

PATIENT
  Age: 38 Year
  Sex: Female

DRUGS (1)
  1. MIRENA [Suspect]
     Active Substance: LEVONORGESTREL
     Indication: CONTRACEPTION
     Dosage: 20 MCG/24HR, CONT
     Route: 015
     Dates: start: 201411, end: 20151018

REACTIONS (8)
  - Coital bleeding [Unknown]
  - Device expulsion [Recovered/Resolved]
  - Vaginal discharge [Unknown]
  - Device ineffective [None]
  - Ectropion of cervix [Unknown]
  - Cervix haemorrhage uterine [Unknown]
  - Pregnancy with contraceptive device [Recovered/Resolved]
  - Device use error [None]

NARRATIVE: CASE EVENT DATE: 2015
